FAERS Safety Report 11858207 (Version 2)
Quarter: 2019Q4

REPORT INFORMATION
  Report Type: Spontaneous
  Country: CH (occurrence: CH)
  Receive Date: 20151222
  Receipt Date: 20191019
  Transmission Date: 20200122
  Serious: Yes (Other)
  Sender: FDA-Public Use
  Company Number: CH-TEVA-619842ISR

PATIENT
  Age: 41 Year
  Sex: Female

DRUGS (6)
  1. ZOLPIDEM [Suspect]
     Active Substance: ZOLPIDEM TARTRATE
     Dosage: UNSPECIFIED STRENGTH, LONG TERM (SINCE 2 YEARS)
     Route: 065
  2. VALACICLOVIR [Suspect]
     Active Substance: VALACYCLOVIR HYDROCHLORIDE
     Indication: GENITAL HERPES
     Dosage: 400 MILLIGRAM DAILY; UNSPECIFIED STRENGTH
     Route: 065
     Dates: start: 20150123, end: 20150128
  3. PROPOFOL. [Suspect]
     Active Substance: PROPOFOL
     Indication: ENDOSCOPY UPPER GASTROINTESTINAL TRACT
     Dosage: UNSPECIFIED STRENGTH
     Route: 065
     Dates: start: 20150108, end: 20150108
  4. TRAMADOL. [Suspect]
     Active Substance: TRAMADOL
     Indication: PAIN
     Dosage: UNSPECIFIED STRENGTH
     Route: 065
     Dates: start: 20150115, end: 20150116
  5. MORPHINE [Suspect]
     Active Substance: MORPHINE
     Indication: PAIN
     Dosage: UNSPECIFIED STRENGTH
     Route: 065
     Dates: start: 20150115, end: 20150116
  6. LEVOTHYROXIN [Concomitant]
     Active Substance: LEVOTHYROXINE
     Dosage: UNSPECIFIED STRENGTH, EXPOSED BEFORE KNOWING SHE WAS PREGNANT
     Route: 065
     Dates: start: 20150116

REACTIONS (2)
  - Maternal exposure during pregnancy [Not Recovered/Not Resolved]
  - Foetal death [Unknown]

NARRATIVE: CASE EVENT DATE: 20150108
